FAERS Safety Report 5364677-9 (Version None)
Quarter: 2007Q2

REPORT INFORMATION
  Report Type: 
  Country: None (occurrence: None)
  Receive Date: 20070621
  Receipt Date: 20070618
  Transmission Date: 20071010
  Serious: Yes (Other)
  Sender: FDA-Public Use
  Company Number: PHEH2007US08931

PATIENT
  Age: 66 Year
  Sex: Male
  Weight: 79.818 kg

DRUGS (1)
  1. ZOMETA [Suspect]
     Dosage: 4 MG EVERY FOUR WEEKS

REACTIONS (2)
  - OSTEOMYELITIS [None]
  - OSTEONECROSIS [None]
